FAERS Safety Report 7937805-6 (Version None)
Quarter: 2011Q4

REPORT INFORMATION
  Report Type: 
  Country: None (occurrence: None)
  Receive Date: 20111123
  Receipt Date: 20111117
  Transmission Date: 20120403
  Serious: Yes (Other)
  Sender: FDA-Public Use
  Company Number: IT-TEVA-309934ISR

PATIENT
  Sex: Male

DRUGS (1)
  1. METHOTREXATE [Suspect]
     Indication: PSORIASIS
     Dosage: 10 MILLIGRAM;
     Route: 030
     Dates: start: 20110209, end: 20111005

REACTIONS (2)
  - HYPERBILIRUBINAEMIA [None]
  - TRANSAMINASES INCREASED [None]
